APPROVED DRUG PRODUCT: HYDROXYZINE PAMOATE
Active Ingredient: HYDROXYZINE PAMOATE
Strength: EQ 100MG HYDROCHLORIDE
Dosage Form/Route: CAPSULE;ORAL
Application: A081129 | Product #001
Applicant: SANDOZ INC
Approved: Jun 28, 1991 | RLD: No | RS: No | Type: DISCN